FAERS Safety Report 7645728-5 (Version None)
Quarter: 2011Q3

REPORT INFORMATION
  Report Type: 
  Country: None (occurrence: None)
  Receive Date: 20110729
  Receipt Date: 20110721
  Transmission Date: 20111222
  Serious: Yes (Life-Threatening, Hospitalization, Other)
  Sender: FDA-Public Use
  Company Number: US-ASTRAZENECA-2011SE40833

PATIENT
  Age: 56 Year
  Sex: Female
  Weight: 59 kg

DRUGS (12)
  1. BYSTOLIC [Concomitant]
  2. VALIUM [Concomitant]
  3. RITALIN [Concomitant]
  4. TRICOR [Concomitant]
  5. CYMBALTA [Concomitant]
  6. LAMISIL [Concomitant]
  7. SEROQUEL [Suspect]
     Route: 048
  8. BACLOFEN [Concomitant]
  9. RESTASIS [Concomitant]
  10. LASIX [Concomitant]
     Dosage: PRN
  11. TOPAMAX [Concomitant]
  12. LIPITOR [Concomitant]

REACTIONS (6)
  - HALLUCINATION [None]
  - COMA [None]
  - SUICIDAL IDEATION [None]
  - AMNESIA [None]
  - FALL [None]
  - NIGHTMARE [None]
